FAERS Safety Report 19687566 (Version 1)
Quarter: 2021Q3

REPORT INFORMATION
  Report Type: Spontaneous
  Country: IT (occurrence: IT)
  Receive Date: 20210811
  Receipt Date: 20210811
  Transmission Date: 20211014
  Serious: Yes (Hospitalization)
  Sender: FDA-Public Use
  Company Number: IT-ENDO PHARMACEUTICALS INC-2021-010903

PATIENT
  Age: 62 Year
  Sex: Female

DRUGS (1)
  1. ACETAZOLAMIDE SODIUM. [Suspect]
     Active Substance: ACETAZOLAMIDE SODIUM
     Indication: PRODUCT USED FOR UNKNOWN INDICATION
     Dosage: 1 G, DAILY, FOR TWO WEEKS AFTER CATARACT SURGERY
     Route: 065

REACTIONS (1)
  - Pemphigoid [Recovered/Resolved]
